FAERS Safety Report 21605536 (Version 1)
Quarter: 2022Q4

REPORT INFORMATION
  Report Type: Report from Study
  Country: DE (occurrence: DE)
  Receive Date: 20221116
  Receipt Date: 20221116
  Transmission Date: 20230112
  Serious: Yes (Hospitalization, Other)
  Sender: FDA-Public Use
  Company Number: DE-MYLANLABS-2022M1082509

PATIENT
  Sex: Female

DRUGS (21)
  1. METHOTREXATE [Suspect]
     Active Substance: METHOTREXATE
     Indication: Rheumatoid arthritis
     Dosage: 15 MG, ROUTE OF ADMINISTRATION : UNKNOWN .THERAPY END DATE : ASKU
     Route: 065
     Dates: start: 20160105
  2. METHOTREXATE [Suspect]
     Active Substance: METHOTREXATE
     Indication: Rheumatoid arthritis
     Dosage: 20 MG, ROUTE OF ADMINISTRATION : UNKNOWN .THERAPY END DATE : ASKU
     Route: 065
     Dates: start: 20150108
  3. METHOTREXATE [Suspect]
     Active Substance: METHOTREXATE
     Dosage: 17.5 MG, ROUTE OF ADMINISTRATION : UNKNOWN .THERAPY END DATE : ASKU
     Route: 065
     Dates: start: 20140101
  4. METHOTREXATE [Suspect]
     Active Substance: METHOTREXATE
     Dosage: 15 MILLIGRAM, THERAPY END DATE : ASKU
     Dates: start: 20191128
  5. METHOTREXATE [Suspect]
     Active Substance: METHOTREXATE
     Dosage: 17.5 MILLIGRAM, THERAPY END DATE : ASKU
     Dates: start: 20140409
  6. METHOTREXATE [Suspect]
     Active Substance: METHOTREXATE
     Dosage: 15 MILLIGRAM, THERAPY END DATE : ASKU
     Dates: start: 20160408
  7. METHOTREXATE [Suspect]
     Active Substance: METHOTREXATE
     Dosage: 20 MILLIGRAM, THERAPY END DATE : ASKU
     Dates: start: 20150402
  8. METHOTREXATE [Suspect]
     Active Substance: METHOTREXATE
     Dosage: 15 MILLIGRAM, THERAPY END DATE : ASKU
     Dates: start: 20190207
  9. METHOTREXATE [Suspect]
     Active Substance: METHOTREXATE
     Dosage: 17.5 MILLIGRAM, THERAPY END DATE : ASKU
     Dates: start: 20140701
  10. METHOTREXATE [Suspect]
     Active Substance: METHOTREXATE
     Dosage: 15 MILLIGRAM, THERAPY END DATE : ASKU
     Dates: start: 20171107
  11. METHOTREXATE [Suspect]
     Active Substance: METHOTREXATE
     Dosage: 15 MILLIGRAM, THERAPY END DATE : ASKU
     Dates: start: 20180504
  12. METHOTREXATE [Suspect]
     Active Substance: METHOTREXATE
     Dosage: 15 MILLIGRAM, THERAPY END DATE : ASKU
     Dates: start: 20161005
  13. METHOTREXATE [Suspect]
     Active Substance: METHOTREXATE
     Dosage: 20 MILLIGRAM, THERAPY END DATE : ASKU
     Dates: start: 20151008
  14. METHOTREXATE [Suspect]
     Active Substance: METHOTREXATE
     Dosage: 15 MILLIGRAM, THERAPY END DATE : ASKU
     Dates: start: 20190523
  15. METHOTREXATE [Suspect]
     Active Substance: METHOTREXATE
     Dosage: 17.5 MILLIGRAM, THERAPY END DATE : ASKU
     Dates: start: 20141001
  16. METHOTREXATE [Suspect]
     Active Substance: METHOTREXATE
     Dosage: 15 MILLIGRAM, THERAPY END DATE : ASKU
     Dates: start: 20170426
  17. ORENCIA [Suspect]
     Active Substance: ABATACEPT
     Indication: Rheumatoid arthritis
     Dosage: 125 MILLIGRAM, DURATION : 11 MONTHS
     Dates: start: 201505, end: 201604
  18. HUMIRA [Suspect]
     Active Substance: ADALIMUMAB
     Indication: Rheumatoid arthritis
     Dosage: 40 MG, UNK, ROUTE OF ADMINISTRATION : UNKNOWN .THERAPY END DATE : ASKU
     Route: 065
     Dates: start: 20140701
  19. HUMIRA [Suspect]
     Active Substance: ADALIMUMAB
     Dosage: 40 MG, UNK, ROUTE OF ADMINISTRATION : UNKNOWN .THERAPY END DATE : ASKU
     Route: 065
     Dates: start: 201404
  20. HUMIRA [Suspect]
     Active Substance: ADALIMUMAB
     Dosage: 40 MG, UNK, ROUTE OF ADMINISTRATION : UNKNOWN .THERAPY END DATE : ASKU
     Route: 065
     Dates: start: 201504
  21. HUMIRA [Suspect]
     Active Substance: ADALIMUMAB
     Dosage: 40 MG, UNK, ROUTE OF ADMINISTRATION : UNKNOWN .DURATION : 1 YEAR
     Route: 065
     Dates: start: 201404, end: 201504

REACTIONS (2)
  - Cerebellar infarction [Recovered/Resolved]
  - Pneumonia [Unknown]

NARRATIVE: CASE EVENT DATE: 20190829
